FAERS Safety Report 8331693-4 (Version None)
Quarter: 2012Q2

REPORT INFORMATION
  Report Type: 
  Country: None (occurrence: None)
  Receive Date: 20120502
  Receipt Date: 20110810
  Transmission Date: 20120825
  Serious: No
  Sender: FDA-Public Use
  Company Number: US-ASTRAZENECA-2011SE47906

PATIENT
  Age: 46 Year
  Sex: Female

DRUGS (4)
  1. ACIPHEX [Concomitant]
     Indication: GASTROOESOPHAGEAL REFLUX DISEASE
  2. ENTOCORT EC [Suspect]
     Route: 048
  3. ENTOCORT EC [Suspect]
     Route: 048
  4. ENTOCORT EC [Suspect]
     Indication: COLITIS
     Route: 048

REACTIONS (2)
  - FEELING ABNORMAL [None]
  - SOMNOLENCE [None]
